FAERS Safety Report 6990811-0 (Version None)
Quarter: 2010Q3

REPORT INFORMATION
  Report Type: 
  Country: None (occurrence: None)
  Receive Date: 20100916
  Receipt Date: 20100824
  Transmission Date: 20110219
  Serious: Yes (Other)
  Sender: FDA-Public Use
  Company Number: DE-PFIZER INC-2010067281

PATIENT
  Sex: Female
  Weight: 65 kg

DRUGS (1)
  1. LYRICA [Suspect]
     Indication: BACK PAIN
     Dosage: TWO CAPSULES DAILY
     Route: 048
     Dates: end: 20100101

REACTIONS (3)
  - DRUG INTOLERANCE [None]
  - MENORRHAGIA [None]
  - MENSTRUATION DELAYED [None]
